FAERS Safety Report 9128975 (Version 2)
Quarter: 2013Q1

REPORT INFORMATION
  Report Type: Spontaneous
  Country: US (occurrence: US)
  Receive Date: 20130125
  Receipt Date: 20130321
  Transmission Date: 20140127
  Serious: Yes (Hospitalization)
  Sender: FDA-Public Use
  Company Number: PHEH2013US002104

PATIENT
  Age: 16 Year
  Sex: Female

DRUGS (9)
  1. TOBI [Suspect]
     Indication: CYSTIC FIBROSIS LUNG
     Dosage: 300MG BID
  2. CREON [Concomitant]
     Dosage: UNK (20 CAPSULE)
  3. ERYTHROMYCIN [Concomitant]
     Dosage: UNK
  4. NADOLOL [Concomitant]
     Dosage: UNK
  5. NOVOLOG [Concomitant]
     Dosage: UNK
  6. LEVEMIR [Concomitant]
     Dosage: UNK
  7. VITAMIN K [Concomitant]
     Dosage: UNK
  8. PULMOZYME [Concomitant]
     Dosage: UNK
  9. CAYSTON [Concomitant]
     Dosage: UNK

REACTIONS (1)
  - Infective pulmonary exacerbation of cystic fibrosis [Unknown]
